FAERS Safety Report 7343217-9 (Version None)
Quarter: 2011Q1

REPORT INFORMATION
  Report Type: 
  Country: None (occurrence: None)
  Receive Date: 20110308
  Receipt Date: 20110308
  Transmission Date: 20110831
  Serious: Yes (Hospitalization)
  Sender: FDA-Public Use
  Company Number: None

PATIENT
  Age: 52 Year
  Sex: Male

DRUGS (1)
  1. FENTANYL [Suspect]
     Indication: SURGERY
     Dates: start: 20110110, end: 20110110

REACTIONS (2)
  - APNOEA [None]
  - RESPIRATORY DEPRESSION [None]
